FAERS Safety Report 19178356 (Version 1)
Quarter: 2021Q2

REPORT INFORMATION
  Report Type: Spontaneous
  Country: US (occurrence: US)
  Receive Date: 20210426
  Receipt Date: 20210426
  Transmission Date: 20210717
  Serious: Yes (Death, Other)
  Sender: FDA-Public Use
  Company Number: US-AMGEN-USASP2021058319

PATIENT

DRUGS (1)
  1. EPOETIN ALFA [Suspect]
     Active Substance: ERYTHROPOIETIN
     Indication: NEPHROGENIC ANAEMIA
     Dosage: UNK
     Route: 065

REACTIONS (42)
  - Pulmonary oedema [Unknown]
  - Device related sepsis [Unknown]
  - Septic shock [Unknown]
  - Gangrene [Unknown]
  - Cardiac failure congestive [Unknown]
  - Diarrhoea [Unknown]
  - Pruritus [Unknown]
  - Pneumonia [Unknown]
  - Cardiac arrest [Unknown]
  - Arteriovenous fistula thrombosis [Unknown]
  - Hyperphosphataemia [Unknown]
  - Drug ineffective [Unknown]
  - Headache [Unknown]
  - Death [Fatal]
  - Sudden death [Fatal]
  - Device related infection [Unknown]
  - Atrial fibrillation [Unknown]
  - Cough [Unknown]
  - Gastrointestinal haemorrhage [Unknown]
  - Haemorrhagic stroke [Unknown]
  - Hyperkalaemia [Unknown]
  - Ischaemic stroke [Unknown]
  - Peritonitis [Unknown]
  - Arteriovenous fistula site complication [Unknown]
  - Hyperparathyroidism secondary [Unknown]
  - Fluid overload [Unknown]
  - Muscle spasms [Unknown]
  - Hypertensive crisis [Unknown]
  - Acute pulmonary oedema [Unknown]
  - Hypertension [Unknown]
  - Cellulitis [Unknown]
  - Back pain [Unknown]
  - Urinary tract infection [Unknown]
  - Nausea [Unknown]
  - Dizziness [Unknown]
  - Vomiting [Unknown]
  - Sepsis [Unknown]
  - Angina unstable [Unknown]
  - Myocardial infarction [Unknown]
  - Hypotension [Unknown]
  - Procedural hypotension [Unknown]
  - Constipation [Unknown]
